FAERS Safety Report 25800125 (Version 1)
Quarter: 2025Q3

REPORT INFORMATION
  Report Type: Spontaneous
  Country: JP (occurrence: JP)
  Receive Date: 20250915
  Receipt Date: 20250915
  Transmission Date: 20251021
  Serious: Yes (Death)
  Sender: MICRO LABS
  Company Number: JP-862174955-ML2025-04594

PATIENT
  Age: 20 Year
  Sex: Female

DRUGS (7)
  1. DIPHENHYDRAMINE HYDROCHLORIDE [Suspect]
     Active Substance: DIPHENHYDRAMINE HYDROCHLORIDE
     Indication: Product used for unknown indication
  2. 7-AMINOFLUNITRAZEPAM [Concomitant]
     Active Substance: 7-AMINOFLUNITRAZEPAM
     Indication: Product used for unknown indication
  3. CAFFEINE [Concomitant]
     Active Substance: CAFFEINE
     Indication: Product used for unknown indication
  4. Desalkylflunitrazepam [Concomitant]
     Indication: Product used for unknown indication
  5. DEXTROMETHORPHAN [Concomitant]
     Active Substance: DEXTROMETHORPHAN
     Indication: Product used for unknown indication
  6. ESCITALOPRAM [Concomitant]
     Active Substance: ESCITALOPRAM OXALATE
     Indication: Product used for unknown indication
  7. LORAZEPAM [Concomitant]
     Active Substance: LORAZEPAM
     Indication: Product used for unknown indication

REACTIONS (2)
  - Overdose [Fatal]
  - Toxicity to various agents [Fatal]
